FAERS Safety Report 4964700-7 (Version None)
Quarter: 2006Q1

REPORT INFORMATION
  Report Type: 
  Country: None (occurrence: None)
  Receive Date: 20060331
  Receipt Date: 20060316
  Transmission Date: 20060701
  Serious: Yes (Hospitalization)
  Sender: FDA-Public Use
  Company Number: AU200603005212

PATIENT
  Age: 72 Year
  Sex: Female

DRUGS (6)
  1. ZYPREXA [Suspect]
     Indication: BIPOLAR DISORDER
     Dosage: 5 MG,
  2. EFFEXOR [Concomitant]
  3. EPLIM (VALPROATE SODIUM) [Concomitant]
  4. DIAMICRON /NET/(GLICAZIDE) [Concomitant]
  5. GLUCOPHAGE [Concomitant]
  6. SIMVASTATIN [Concomitant]

REACTIONS (1)
  - CONGESTIVE CARDIOMYOPATHY [None]
